FAERS Safety Report 23302757 (Version 2)
Quarter: 2024Q1

REPORT INFORMATION
  Report Type: Spontaneous
  Country: DK (occurrence: DK)
  Receive Date: 20231215
  Receipt Date: 20240125
  Transmission Date: 20240409
  Serious: Yes (Hospitalization)
  Sender: FDA-Public Use
  Company Number: DK-GRINDPROD-2023003524

PATIENT
  Age: 74 Year
  Sex: Male
  Weight: 66.2 kg

DRUGS (2)
  1. RITUXIMAB [Suspect]
     Active Substance: RITUXIMAB
     Indication: Marginal zone lymphoma
     Dosage: 700 MG, Q4W
     Route: 042
     Dates: start: 20220817
  2. LENALIDOMIDE [Suspect]
     Active Substance: LENALIDOMIDE
     Indication: Marginal zone lymphoma
     Dosage: QD3 MONTHS 2 DAYS
     Route: 048
     Dates: start: 20220817, end: 20221118

REACTIONS (2)
  - Pneumonia [Recovered/Resolved]
  - Embolism [Recovered/Resolved]

NARRATIVE: CASE EVENT DATE: 20221105
